FAERS Safety Report 5141804-X (Version None)
Quarter: 2006Q4

REPORT INFORMATION
  Report Type: 
  Country: None (occurrence: None)
  Receive Date: 20061027
  Receipt Date: 20061019
  Transmission Date: 20070319
  Serious: Yes (Hospitalization)
  Sender: FDA-Public Use
  Company Number: 2006128679

PATIENT
  Age: 69 Year
  Sex: Male

DRUGS (1)
  1. LIPITOR [Suspect]
     Dosage: (80 MG), ORAL
     Route: 048
     Dates: start: 20060801

REACTIONS (4)
  - CORONARY ARTERIAL STENT INSERTION [None]
  - NIGHT SWEATS [None]
  - SURGICAL PROCEDURE REPEATED [None]
  - TREMOR [None]
